FAERS Safety Report 7799292-0 (Version None)
Quarter: 2011Q4

REPORT INFORMATION
  Report Type: 
  Country: None (occurrence: None)
  Receive Date: 20111006
  Receipt Date: 20110926
  Transmission Date: 20120403
  Serious: Yes (Other)
  Sender: FDA-Public Use
  Company Number: JP-ELI_LILLY_AND_COMPANY-JP201108006720

PATIENT
  Age: 42 Year

DRUGS (3)
  1. BYETTA [Suspect]
     Dosage: 10 UG, UNK
     Route: 058
  2. BYETTA [Suspect]
     Dosage: 10 UG, UNK
     Route: 058
  3. BYETTA [Suspect]
     Dosage: 5 UG, QD
     Route: 058

REACTIONS (2)
  - NAUSEA [None]
  - CAECUM OPERATION [None]
